FAERS Safety Report 6641569-6 (Version None)
Quarter: 2010Q1

REPORT INFORMATION
  Report Type: 
  Country: None (occurrence: None)
  Receive Date: 20100318
  Receipt Date: 20100312
  Transmission Date: 20100710
  Serious: Yes (Death, Hospitalization)
  Sender: FDA-Public Use
  Company Number: US-GILEAD-2010-0027601

PATIENT
  Sex: Male
  Weight: 90.8 kg

DRUGS (15)
  1. LETAIRIS [Suspect]
     Indication: PULMONARY ARTERIAL HYPERTENSION
     Route: 048
     Dates: start: 20100209, end: 20100312
  2. TOPROL-XL [Concomitant]
  3. ALTACE [Concomitant]
  4. LANOXIN [Concomitant]
  5. PLAVIX [Concomitant]
  6. LIPITOR [Concomitant]
  7. LASIX [Concomitant]
  8. ASPIRIN [Concomitant]
  9. ALDACTONE [Concomitant]
  10. LANTUS [Concomitant]
  11. HUMALOG [Concomitant]
  12. PREDNISONE [Concomitant]
  13. ALLOPURINOL [Concomitant]
  14. SYMBICORT [Concomitant]
  15. COLCHICINE [Concomitant]

REACTIONS (1)
  - INTERSTITIAL LUNG DISEASE [None]
